FAERS Safety Report 8921189 (Version 2)
Quarter: 2012Q4

REPORT INFORMATION
  Report Type: 
  Country: US (occurrence: US)
  Receive Date: 20121121
  Receipt Date: 20121129
  Transmission Date: 20130627
  Serious: Yes (Hospitalization)
  Sender: FDA-Public Use
  Company Number: US-ASTRAZENECA-2011SE72552

PATIENT
  Age: 74 Year
  Sex: Female

DRUGS (2)
  1. SYMBICORT PMDI [Suspect]
     Dosage: 80/4.5 MCG, DAILY
     Route: 055
  2. NEXIUM [Suspect]
     Route: 048

REACTIONS (11)
  - Pneumonia [Unknown]
  - Asthma [Unknown]
  - Pain [Unknown]
  - Musculoskeletal discomfort [Unknown]
  - Back disorder [Unknown]
  - Weight decreased [Unknown]
  - Malaise [Unknown]
  - Sleep disorder due to a general medical condition [Unknown]
  - Gastrooesophageal reflux disease [Unknown]
  - Cough [Unknown]
  - Drug dose omission [Unknown]
